FAERS Safety Report 25214483 (Version 3)
Quarter: 2025Q2

REPORT INFORMATION
  Report Type: Spontaneous
  Country: US (occurrence: US)
  Receive Date: 20250418
  Receipt Date: 20250528
  Transmission Date: 20250716
  Serious: No
  Sender: PFIZER
  Company Number: US-PFIZER INC-202500073409

PATIENT
  Age: 13 Year
  Sex: Male
  Weight: 29.025 kg

DRUGS (1)
  1. GENOTROPIN [Suspect]
     Active Substance: SOMATROPIN
     Indication: Short stature
     Dosage: 0.8 MG, DAILY
     Dates: start: 202408

REACTIONS (1)
  - Device chemical property issue [Unknown]

NARRATIVE: CASE EVENT DATE: 20250404
